FAERS Safety Report 5713820-8 (Version None)
Quarter: 2008Q2

REPORT INFORMATION
  Report Type: 
  Country: None (occurrence: None)
  Receive Date: 20080421
  Receipt Date: 20080410
  Transmission Date: 20081010
  Serious: Yes (Hospitalization)
  Sender: FDA-Public Use
  Company Number: TPA2008A00487

PATIENT
  Sex: Female

DRUGS (2)
  1. ACTOS [Suspect]
     Dosage: PER ORAL
     Route: 048
     Dates: end: 20080410
  2. LANTUS [Concomitant]

REACTIONS (5)
  - BLOOD GLUCOSE INCREASED [None]
  - FATIGUE [None]
  - MYALGIA [None]
  - NAUSEA [None]
  - ROAD TRAFFIC ACCIDENT [None]
